FAERS Safety Report 4564520-1 (Version None)
Quarter: 2005Q1

REPORT INFORMATION
  Report Type: 
  Country: None (occurrence: None)
  Receive Date: 20050128
  Receipt Date: 20050119
  Transmission Date: 20050727
  Serious: Yes (Other)
  Sender: FDA-Public Use
  Company Number: FR-JNJFOC-20050105094

PATIENT
  Age: 41 Year
  Sex: Male

DRUGS (2)
  1. EPITOMAX [Suspect]
     Route: 049
  2. EPITOMAX [Suspect]
     Indication: MIGRAINE PROPHYLAXIS
     Route: 049

REACTIONS (4)
  - BALANCE DISORDER [None]
  - DEPRESSION [None]
  - DISTURBANCE IN ATTENTION [None]
  - SPEECH DISORDER [None]
